FAERS Safety Report 23263194 (Version 1)
Quarter: 2023Q4

REPORT INFORMATION
  Report Type: Spontaneous
  Country: US (occurrence: None)
  Receive Date: 20231204
  Receipt Date: 20231204
  Transmission Date: 20240109
  Serious: No
  Sender: FDA-Public Use
  Company Number: None

PATIENT
  Age: 11 Year
  Sex: Male
  Weight: 29.25 kg

DRUGS (3)
  1. MONTELUKAST [Suspect]
     Active Substance: MONTELUKAST SODIUM
     Indication: Multiple allergies
     Dates: start: 20231109, end: 20231130
  2. EPIPEN [Concomitant]
     Active Substance: EPINEPHRINE
  3. Multivitamin gummies [Concomitant]

REACTIONS (6)
  - Tic [None]
  - Excessive eye blinking [None]
  - Head titubation [None]
  - Abnormal dreams [None]
  - Abnormal dreams [None]
  - Therapy cessation [None]

NARRATIVE: CASE EVENT DATE: 20231115
